FAERS Safety Report 23097601 (Version 2)
Quarter: 2023Q4

REPORT INFORMATION
  Report Type: Report from Study
  Country: US (occurrence: US)
  Receive Date: 20231023
  Receipt Date: 20231123
  Transmission Date: 20240110
  Serious: Yes (Other)
  Sender: FDA-Public Use
  Company Number: US-ABBVIE-5458325

PATIENT
  Age: 45 Year
  Sex: Female

DRUGS (2)
  1. RINVOQ [Suspect]
     Active Substance: UPADACITINIB
     Indication: Psoriatic arthropathy
     Route: 048
     Dates: start: 20221019
  2. RINVOQ [Suspect]
     Active Substance: UPADACITINIB
     Indication: Psoriatic arthropathy
     Dosage: LAST ADMIN DATE : 2022
     Route: 048
     Dates: start: 20220228

REACTIONS (6)
  - Surgery [Recovering/Resolving]
  - Limb operation [Unknown]
  - Joint arthroplasty [Unknown]
  - Medical device implantation [Unknown]
  - Joint arthroplasty [Unknown]
  - Medical device implantation [Unknown]

NARRATIVE: CASE EVENT DATE: 20230101
